FAERS Safety Report 10949236 (Version 1)
Quarter: 2015Q1

REPORT INFORMATION
  Report Type: Spontaneous
  Country: IT (occurrence: IT)
  Receive Date: 20150324
  Receipt Date: 20150324
  Transmission Date: 20150721
  Serious: Yes (Hospitalization)
  Sender: FDA-Public Use
  Company Number: IT-SA-2015SA035791

PATIENT
  Age: 39 Year
  Sex: Female

DRUGS (2)
  1. ZOLPIDEM TARTRATE. [Suspect]
     Active Substance: ZOLPIDEM TARTRATE
     Indication: INSOMNIA
     Dosage: DOSE- EQUAL TO 200 MG / DAY
     Route: 048
     Dates: end: 20150310
  2. ZOLPIDEM TARTRATE. [Suspect]
     Active Substance: ZOLPIDEM TARTRATE
     Indication: INSOMNIA
     Route: 048
     Dates: start: 20130310

REACTIONS (1)
  - Drug dependence [Recovering/Resolving]

NARRATIVE: CASE EVENT DATE: 20150310
